FAERS Safety Report 4743076-4 (Version None)
Quarter: 2005Q3

REPORT INFORMATION
  Report Type: 
  Country: None (occurrence: None)
  Receive Date: 20050811
  Receipt Date: 20040315
  Transmission Date: 20060218
  Serious: Yes (Other)
  Sender: FDA-Public Use
  Company Number: US-MERCK-0403USA01374

PATIENT
  Age: 0 Day

DRUGS (4)
  1. SINGULAIR [Suspect]
     Indication: ASTHMA
     Dates: start: 20040301
  2. PROVENTIL [Concomitant]
  3. FLOVENT [Concomitant]
  4. SEREVENT [Concomitant]

REACTIONS (1)
  - FOETAL HEART RATE DECREASED [None]
